FAERS Safety Report 21168178 (Version 2)
Quarter: 2023Q2

REPORT INFORMATION
  Report Type: Spontaneous
  Country: BE (occurrence: BE)
  Receive Date: 20220803
  Receipt Date: 20230622
  Transmission Date: 20230721
  Serious: Yes (Other)
  Sender: FDA-Public Use
  Company Number: BE-EMA-DD-20181220-kumarvn_p-120312

PATIENT

DRUGS (11)
  1. PROPRANOLOL [Suspect]
     Active Substance: PROPRANOLOL HYDROCHLORIDE
     Indication: Occupational exposure to product
     Dosage: UNK
     Route: 061
  2. SOTALOL [Suspect]
     Active Substance: SOTALOL
     Indication: Occupational exposure to product
     Dosage: UNK
     Route: 061
  3. BISOPROLOL FUMARATE [Suspect]
     Active Substance: BISOPROLOL FUMARATE
     Indication: Occupational exposure to product
     Dosage: UNK
     Route: 061
  4. CAPTOPRIL [Suspect]
     Active Substance: CAPTOPRIL
     Indication: Occupational exposure to product
     Dosage: UNK
     Route: 065
  5. PERINDOPRIL [Suspect]
     Active Substance: PERINDOPRIL
     Indication: Occupational exposure to product
     Dosage: UNK
     Route: 061
  6. LISINOPRIL [Suspect]
     Active Substance: LISINOPRIL
     Indication: Occupational exposure to product
     Dosage: UNK
     Route: 061
  7. METOPROLOL TARTRATE [Suspect]
     Active Substance: METOPROLOL TARTRATE
     Indication: Occupational exposure to product
     Dosage: UNK
     Route: 061
  8. LORMETAZEPAM [Suspect]
     Active Substance: LORMETAZEPAM
     Indication: Occupational exposure to product
     Dosage: UNK
     Route: 061
  9. ALPRAZOLAM [Suspect]
     Active Substance: ALPRAZOLAM
     Indication: Occupational exposure to product
     Dosage: UNK
     Route: 061
  10. ENALAPRIL MALEATE [Suspect]
     Active Substance: ENALAPRIL MALEATE
     Indication: Occupational exposure to product
     Dosage: UNK
     Route: 061
  11. TETRAZEPAM [Suspect]
     Active Substance: TETRAZEPAM
     Indication: Occupational exposure to product
     Dosage: UNK
     Route: 061

REACTIONS (9)
  - Skin exfoliation [Unknown]
  - Drug hypersensitivity [Unknown]
  - Localised oedema [Unknown]
  - Pruritus [Unknown]
  - Eczema eyelids [Unknown]
  - Skin test positive [Unknown]
  - Erythema [Unknown]
  - Wrong technique in product usage process [Unknown]
  - Occupational exposure to product [Unknown]

NARRATIVE: CASE EVENT DATE: 20120101
